FAERS Safety Report 10026136 (Version 1)
Quarter: 2014Q1

REPORT INFORMATION
  Report Type: Spontaneous
  Country: US (occurrence: US)
  Receive Date: 20140320
  Receipt Date: 20140320
  Transmission Date: 20141002
  Serious: No
  Sender: FDA-Public Use
  Company Number: US-ALLERGAN-1403957US

PATIENT
  Age: 73 Year
  Sex: Male

DRUGS (1)
  1. LUMIGAN 0.01% [Suspect]
     Indication: GLAUCOMA
     Dosage: 2 GTT, SINGLE
     Route: 047
     Dates: start: 20140226, end: 20140226

REACTIONS (2)
  - Expired drug administered [Unknown]
  - Eye irritation [Recovered/Resolved]
